FAERS Safety Report 21110701 (Version 1)
Quarter: 2022Q3

REPORT INFORMATION
  Report Type: Spontaneous
  Country: TR (occurrence: TR)
  Receive Date: 20220721
  Receipt Date: 20220721
  Transmission Date: 20221027
  Serious: Yes (Life-Threatening, Hospitalization, Other)
  Sender: FDA-Public Use
  Company Number: TR-MYLANLABS-2022M1050384

PATIENT
  Age: 23 Year
  Sex: Male

DRUGS (17)
  1. PARLODEL [Suspect]
     Active Substance: BROMOCRIPTINE MESYLATE
     Indication: Neuroleptic malignant syndrome
     Dosage: 2.5 MILLIGRAM, TID
     Route: 065
  2. PARLODEL [Suspect]
     Active Substance: BROMOCRIPTINE MESYLATE
     Dosage: 5 MILLIGRAM, TID 3 X 5MG/DAY
     Route: 065
  3. PARLODEL [Suspect]
     Active Substance: BROMOCRIPTINE MESYLATE
     Dosage: 10 MILLIGRAM, TID 3 X 10MG/DAY
     Route: 065
  4. LORAZEPAM [Suspect]
     Active Substance: LORAZEPAM
     Indication: Neuroleptic malignant syndrome
     Dosage: 5 MILLIGRAM, TID
     Route: 065
  5. LORAZEPAM [Suspect]
     Active Substance: LORAZEPAM
     Dosage: 4 MILLIGRAM, QD
     Route: 065
  6. LORAZEPAM [Suspect]
     Active Substance: LORAZEPAM
     Dosage: 3 MILLIGRAM, QD
     Route: 048
  7. LORAZEPAM [Suspect]
     Active Substance: LORAZEPAM
     Dosage: 8 MILLIGRAM, QD
     Route: 048
  8. LORAZEPAM [Suspect]
     Active Substance: LORAZEPAM
     Dosage: 10 MILLIGRAM, QD THEREAFTER DOSE DECREASED
     Route: 048
  9. LITHIUM [Suspect]
     Active Substance: LITHIUM
     Indication: Bipolar I disorder
     Dosage: 1500 MILLIGRAM, QD
     Route: 065
  10. LITHIUM [Suspect]
     Active Substance: LITHIUM
     Dosage: 1800 MILLIGRAM, QD
     Route: 065
  11. QUETIAPINE [Suspect]
     Active Substance: QUETIAPINE
     Indication: Bipolar I disorder
     Dosage: 200 MILLIGRAM, QD
     Route: 065
  12. ZUCLOPENTHIXOL ACETATE [Suspect]
     Active Substance: ZUCLOPENTHIXOL ACETATE
     Indication: Bipolar I disorder
     Dosage: 50 MILLIGRAM
     Route: 030
  13. ZUCLOPENTHIXOL ACETATE [Suspect]
     Active Substance: ZUCLOPENTHIXOL ACETATE
     Dosage: 50 MILLIGRAM, Q3D 21 DAYS AFTER FIRST INJECTION, ZUCLOPENTHIXOL 50MG IM GIVEN 3 MORE TIMES
     Route: 030
  14. ZUCLOPENTHIXOL DECANOATE [Suspect]
     Active Substance: ZUCLOPENTHIXOL DECANOATE
     Indication: Bipolar I disorder
     Dosage: 200 MILLIGRAM DEPOT INJECTION
     Route: 030
  15. BIPERIDEN [Concomitant]
     Active Substance: BIPERIDEN
     Indication: Bradykinesia
     Dosage: 2 MILLIGRAM, QD
     Route: 065
  16. BIPERIDEN [Concomitant]
     Active Substance: BIPERIDEN
     Indication: Cogwheel rigidity
  17. DANTROLENE SODIUM [Concomitant]
     Active Substance: DANTROLENE SODIUM
     Dosage: 80 MILLIGRAM, Q2H
     Route: 065

REACTIONS (4)
  - Neuroleptic malignant syndrome [Recovering/Resolving]
  - Loss of consciousness [Recovered/Resolved]
  - Drug ineffective for unapproved indication [Unknown]
  - Hypokalaemia [Unknown]
